FAERS Safety Report 8261913-6 (Version None)
Quarter: 2012Q2

REPORT INFORMATION
  Report Type: 
  Country: None (occurrence: None)
  Receive Date: 20120405
  Receipt Date: 20110528
  Transmission Date: 20120825
  Serious: Yes (Hospitalization)
  Sender: FDA-Public Use
  Company Number: IT-CELGENEUS-083-21880-11060504

PATIENT

DRUGS (1)
  1. REVLIMID [Suspect]
     Route: 048
     Dates: end: 20100915

REACTIONS (5)
  - WEIGHT DECREASED [None]
  - TOXICITY TO VARIOUS AGENTS [None]
  - ASTHENIA [None]
  - CACHEXIA [None]
  - MALAISE [None]
